FAERS Safety Report 20124743 (Version 1)
Quarter: 2021Q4

REPORT INFORMATION
  Report Type: Spontaneous
  Country: US (occurrence: US)
  Receive Date: 20211129
  Receipt Date: 20211129
  Transmission Date: 20220303
  Serious: Yes (Hospitalization, Other)
  Sender: FDA-Public Use
  Company Number: US-ELI_LILLY_AND_COMPANY-US202111007252

PATIENT
  Age: 16 Year
  Sex: Male

DRUGS (6)
  1. INSULIN LISPRO [Suspect]
     Active Substance: INSULIN LISPRO
     Indication: Type 1 diabetes mellitus
     Dosage: UNK UNK, WITH MEALS
     Route: 065
  2. INSULIN GLARGINE [Suspect]
     Active Substance: INSULIN GLARGINE
     Indication: Type 1 diabetes mellitus
     Dosage: UNK, EACH EVENING
     Route: 065
  3. SERTRALINE [Concomitant]
     Active Substance: SERTRALINE HYDROCHLORIDE
     Dosage: 100 MG, DAILY
     Route: 065
  4. GUANFACINE [Concomitant]
     Active Substance: GUANFACINE
     Dosage: 1 MG, EACH MORNING
     Route: 065
  5. GUANFACINE [Concomitant]
     Active Substance: GUANFACINE
     Dosage: 3 MG, EACH EVENING
     Route: 065
  6. MELATONIN [Concomitant]
     Active Substance: MELATONIN
     Dosage: 3 MG, AT NIGHT AS NEEDED
     Route: 065

REACTIONS (4)
  - Hepatitis acute [Recovered/Resolved]
  - Glycogen storage disease type VIII [Recovered/Resolved]
  - Hypoglycaemia [Recovered/Resolved]
  - Overdose [Recovered/Resolved]
